FAERS Safety Report 11461559 (Version 1)
Quarter: 2015Q3

REPORT INFORMATION
  Report Type: Spontaneous
  Country: US (occurrence: US)
  Receive Date: 20150831
  Receipt Date: 20150831
  Transmission Date: 20151125
  Serious: Yes (Other)
  Sender: FDA-Public Use
  Company Number: US-ELI_LILLY_AND_COMPANY-US200906004362

PATIENT
  Age: 65 Year
  Sex: Female

DRUGS (10)
  1. CYMBALTA [Suspect]
     Active Substance: DULOXETINE HYDROCHLORIDE
     Dosage: 30 MG, DAILY (1/D)
     Dates: start: 200903
  2. CYMBALTA [Suspect]
     Active Substance: DULOXETINE HYDROCHLORIDE
     Indication: NEURALGIA
     Dosage: 30 MG, QOD
     Dates: start: 200903
  3. KLONOPIN [Concomitant]
     Active Substance: CLONAZEPAM
     Indication: PAIN
  4. CRESTOR [Concomitant]
     Active Substance: ROSUVASTATIN CALCIUM
     Indication: BLOOD CHOLESTEROL
  5. CYMBALTA [Suspect]
     Active Substance: DULOXETINE HYDROCHLORIDE
     Dosage: 30 MG, UNK
  6. CYMBALTA [Suspect]
     Active Substance: DULOXETINE HYDROCHLORIDE
     Dosage: 20 MG, UNK
  7. REMERON [Concomitant]
     Active Substance: MIRTAZAPINE
     Indication: SLEEP DISORDER
     Dosage: UNK, EACH EVENING
  8. NORTRIPTYLINE [Concomitant]
     Active Substance: NORTRIPTYLINE
     Dosage: 10 MG, UNK
     Dates: start: 200907
  9. CYMBALTA [Suspect]
     Active Substance: DULOXETINE HYDROCHLORIDE
     Dosage: 60 MG, DAILY (1/D)
  10. CYMBALTA [Suspect]
     Active Substance: DULOXETINE HYDROCHLORIDE
     Dosage: 20 MG, 2/D

REACTIONS (27)
  - Eye infection [Unknown]
  - Asthma [Unknown]
  - Hordeolum [Unknown]
  - Diplopia [Not Recovered/Not Resolved]
  - Abdominal pain upper [Unknown]
  - Urticaria [Unknown]
  - Skin burning sensation [Unknown]
  - Hyperhidrosis [Not Recovered/Not Resolved]
  - Polyp [Unknown]
  - Haematochezia [Unknown]
  - Headache [Unknown]
  - Diarrhoea [Unknown]
  - Nausea [Unknown]
  - Chills [Unknown]
  - Cyst [Unknown]
  - Haemorrhage [Unknown]
  - Off label use [Unknown]
  - Rash [Unknown]
  - Drug withdrawal syndrome [Unknown]
  - Ear discomfort [Not Recovered/Not Resolved]
  - Lacrimation increased [Unknown]
  - Dizziness [Unknown]
  - Eye pain [Unknown]
  - Ocular discomfort [Unknown]
  - Chest pain [Unknown]
  - Blood cholesterol increased [Unknown]
  - Vertigo [Unknown]

NARRATIVE: CASE EVENT DATE: 2009
